FAERS Safety Report 19977872 (Version 1)
Quarter: 2021Q4

REPORT INFORMATION
  Report Type: Spontaneous
  Country: US (occurrence: US)
  Receive Date: 20211020
  Receipt Date: 20211020
  Transmission Date: 20220303
  Serious: No
  Sender: FDA-Public Use
  Company Number: None

PATIENT
  Sex: Female
  Weight: 61.65 kg

DRUGS (17)
  1. IBRANCE [Suspect]
     Active Substance: PALBOCICLIB
     Indication: Breast cancer
     Dosage: ?          OTHER FREQUENCY:DAILY FOR 21/28 D;
     Route: 048
     Dates: start: 20210423
  2. ALEVE [Concomitant]
     Active Substance: NAPROXEN SODIUM
  3. ANASTROZOLE [Concomitant]
     Active Substance: ANASTROZOLE
  4. ALPRAZOLAM [Concomitant]
     Active Substance: ALPRAZOLAM
  5. ATORVASTATIN [Concomitant]
     Active Substance: ATORVASTATIN
  6. BENEFIBER [Concomitant]
     Active Substance: STARCH, WHEAT
  7. CITALOPRAM [Concomitant]
     Active Substance: CITALOPRAM HYDROBROMIDE
  8. CLARITIN [Concomitant]
     Active Substance: LORATADINE
  9. COLACE [Concomitant]
     Active Substance: DOCUSATE SODIUM
  10. LINZESS [Concomitant]
     Active Substance: LINACLOTIDE
  11. LISINOPRIL [Concomitant]
     Active Substance: LISINOPRIL
  12. MIGRAINE FORMULA [Concomitant]
     Active Substance: ACETAMINOPHEN\ASPIRIN\CAFFEINE
  13. OXYBUTYNIN. [Concomitant]
     Active Substance: OXYBUTYNIN CHLORIDE
  14. PREVIDENT [Concomitant]
     Active Substance: SODIUM FLUORIDE
  15. PRILOSEC OTC [Concomitant]
     Active Substance: OMEPRAZOLE MAGNESIUM
  16. PROAIR HFA [Concomitant]
     Active Substance: ALBUTEROL SULFATE
  17. STIOLTO RESPIMAT [Concomitant]
     Active Substance: OLODATEROL HYDROCHLORIDE\TIOTROPIUM BROMIDE MONOHYDRATE

REACTIONS (1)
  - Hot flush [None]
